FAERS Safety Report 6695802-5 (Version None)
Quarter: 2010Q2

REPORT INFORMATION
  Report Type: 
  Country: None (occurrence: None)
  Receive Date: 20100421
  Receipt Date: 20100406
  Transmission Date: 20101027
  Serious: Yes (Death, Hospitalization)
  Sender: FDA-Public Use
  Company Number: 2010001290

PATIENT
  Age: 77 Year
  Sex: Male
  Weight: 47 kg

DRUGS (6)
  1. ERLOTINIB HYDROCHLORIDE [Suspect]
     Indication: NON-SMALL CELL LUNG CANCER
     Dosage: 150 MG, QD, ORAL
     Route: 048
     Dates: start: 20091215, end: 20100222
  2. LAPRAZOL (LANSOPRAZOLE) [Concomitant]
  3. CITALOPRAM HYDROBROMIDE [Concomitant]
  4. MAGNESIUM ASPARTATE HYDROCHLORIDE (MAGNESIUM ASPARTATE HYDROCHLORIDE) [Concomitant]
  5. TREBON N (ACETYLCYSTEINE) [Concomitant]
  6. MEGACE [Concomitant]

REACTIONS (16)
  - ACUTE HEPATIC FAILURE [None]
  - CARDIAC ARREST [None]
  - DECREASED APPETITE [None]
  - DEHYDRATION [None]
  - DISEASE PROGRESSION [None]
  - DYSPHAGIA [None]
  - FATIGUE [None]
  - GENERAL PHYSICAL HEALTH DETERIORATION [None]
  - HYPERCALCAEMIA [None]
  - MUCOSAL DRYNESS [None]
  - MULTI-ORGAN DISORDER [None]
  - OESOPHAGOBRONCHIAL FISTULA [None]
  - PNEUMONIA ASPIRATION [None]
  - RENAL FAILURE ACUTE [None]
  - SKIN ATROPHY [None]
  - STUPOR [None]
